FAERS Safety Report 4609581-6 (Version None)
Quarter: 2005Q1

REPORT INFORMATION
  Report Type: 
  Country: None (occurrence: None)
  Receive Date: 20050314
  Receipt Date: 20050228
  Transmission Date: 20050727
  Serious: Yes (Hospitalization)
  Sender: FDA-Public Use
  Company Number: 2005CG00441

PATIENT
  Age: 68 Year
  Sex: Male
  Weight: 67 kg

DRUGS (12)
  1. ZOLADEX [Suspect]
     Indication: PROSTATE CANCER
     Dosage: 10.8 MG
     Dates: start: 20030701
  2. OMEPRAZOLE [Suspect]
     Dosage: 1 DF DAILY PO
     Route: 048
  3. FONZYLANE [Suspect]
     Dosage: 2 DF DAILY PO
     Route: 048
     Dates: start: 20030701
  4. XATRAL/FRA/ [Suspect]
     Dosage: 1 DF DAILY PO
     Route: 048
     Dates: start: 20030701
  5. ELISOR [Suspect]
     Dosage: 1 DF DAILY PO
     Route: 048
     Dates: start: 20030701
  6. KREDEX [Suspect]
     Dosage: 2 DF DAILY PO
     Route: 048
     Dates: start: 20030701
  7. PLAVIX [Suspect]
     Dosage: 1 DF DAILY PO
     Route: 048
  8. ASPEGIC 325 [Suspect]
     Dosage: 100 MG QD
  9. LIBRAX [Suspect]
     Dosage: 2 DF DAILY
  10. RAMIPRIL [Suspect]
  11. LASIX [Suspect]
  12. POTASSIUM CHLORIDE [Suspect]
     Dosage: 3 DF DAILY

REACTIONS (2)
  - ARTERIOSPASM CORONARY [None]
  - MYOCARDIAL INFARCTION [None]
